FAERS Safety Report 15440865 (Version 1)
Quarter: 2018Q3

REPORT INFORMATION
  Report Type: Spontaneous
  Country: US (occurrence: US)
  Receive Date: 20180925
  Receipt Date: 20180925
  Transmission Date: 20181010
  Serious: Yes (Other)
  Sender: FDA-Public Use
  Company Number: None

PATIENT
  Age: 92 Year
  Sex: Female
  Weight: 38.02 kg

DRUGS (15)
  1. ASPIRIN. [Concomitant]
     Active Substance: ASPIRIN
  2. FERROUS SULFATE. [Concomitant]
     Active Substance: FERROUS SULFATE
  3. AMIODARONE [Concomitant]
     Active Substance: AMIODARONE
  4. SYNTHROID [Concomitant]
     Active Substance: LEVOTHYROXINE SODIUM
  5. MULTIVITAMINS [Concomitant]
     Active Substance: VITAMINS
  6. VITAMIN D [Concomitant]
     Active Substance: CHOLECALCIFEROL
  7. MELATONIN [Concomitant]
     Active Substance: MELATONIN
  8. POTASSIUM [Concomitant]
     Active Substance: POTASSIUM
  9. PROLIA [Concomitant]
     Active Substance: DENOSUMAB
  10. PRESERVISION [Concomitant]
     Active Substance: MINERALS\VITAMINS
  11. ULTRACET [Concomitant]
     Active Substance: ACETAMINOPHEN\TRAMADOL HYDROCHLORIDE
  12. REMERON [Concomitant]
     Active Substance: MIRTAZAPINE
  13. ALECENSA [Suspect]
     Active Substance: ALECTINIB HYDROCHLORIDE
     Indication: NON-SMALL CELL LUNG CANCER
     Route: 048
     Dates: start: 20180829
  14. DILTIAZEM. [Concomitant]
     Active Substance: DILTIAZEM
  15. PLAVIX [Concomitant]
     Active Substance: CLOPIDOGREL BISULFATE

REACTIONS (1)
  - Disease progression [None]
